FAERS Safety Report 8349123-5 (Version None)
Quarter: 2012Q2

REPORT INFORMATION
  Report Type: 
  Country: None (occurrence: None)
  Receive Date: 20120508
  Receipt Date: 20120424
  Transmission Date: 20120825
  Serious: Yes (Hospitalization)
  Sender: FDA-Public Use
  Company Number: AUR-APL-2012-01936

PATIENT
  Age: 72 Year
  Sex: Male

DRUGS (9)
  1. MIRTAZAPINE [Suspect]
     Indication: PRODUCT USED FOR UNKNOWN INDICATION
     Dosage: 30 MG (30 MG,2 IN 1 D),ORAL
     Route: 048
     Dates: end: 20120411
  2. LACTULOSE [Concomitant]
  3. OLANZAPINE [Suspect]
     Indication: PRODUCT USED FOR UNKNOWN INDICATION
     Dosage: 20 MG (10 MG,2 IN 1 D),ORAL
     Route: 048
     Dates: start: 20120102, end: 20120411
  4. CYANOCOBALAMIN [Concomitant]
  5. MOMETASONE FUROATE [Concomitant]
  6. ALBUTEROL SULFATE [Concomitant]
  7. TRAZODONE HCL [Suspect]
     Indication: PRODUCT USED FOR UNKNOWN INDICATION
     Dosage: 200 MG (200 MG,1 IN 1 D),ORAL
     Route: 048
     Dates: start: 20120102, end: 20120411
  8. ASPIRIN [Concomitant]
  9. SALMETEROL AND FLUTICASONE [Concomitant]

REACTIONS (2)
  - UNRESPONSIVE TO STIMULI [None]
  - NEUROLEPTIC MALIGNANT SYNDROME [None]
